FAERS Safety Report 21796948 (Version 1)
Quarter: 2022Q4

REPORT INFORMATION
  Report Type: Report from Study
  Country: US (occurrence: US)
  Receive Date: 20221230
  Receipt Date: 20221230
  Transmission Date: 20230113
  Serious: Yes (Other)
  Sender: FDA-Public Use
  Company Number: US-ABBVIE-4251931

PATIENT
  Age: 71 Year
  Sex: Male

DRUGS (1)
  1. HUMIRA [Suspect]
     Active Substance: ADALIMUMAB
     Indication: Rheumatoid arthritis
     Route: 058

REACTIONS (4)
  - Transurethral prostatectomy [Recovering/Resolving]
  - Polymyalgia rheumatica [Unknown]
  - Arthralgia [Unknown]
  - Toe amputation [Unknown]

NARRATIVE: CASE EVENT DATE: 20190301
